FAERS Safety Report 7251606-6 (Version None)
Quarter: 2011Q1

REPORT INFORMATION
  Report Type: 
  Country: None (occurrence: None)
  Receive Date: 20110128
  Receipt Date: 20110118
  Transmission Date: 20110831
  Serious: Yes (Hospitalization)
  Sender: FDA-Public Use
  Company Number: US-NAPPMUNDI-DEU-2011-0006919

PATIENT
  Age: 32 Year
  Sex: Male

DRUGS (6)
  1. HYDROMORPHONE HCL [Suspect]
     Indication: PAIN
     Dosage: 8 MG, Q3H
  2. MORPHINE SULFATE [Suspect]
     Indication: PAIN
     Dosage: 8 MG, Q8H
     Route: 042
  3. ACETAMINOPHEN AND OXYCODONE HCL [Suspect]
     Indication: PAIN
  4. METHADONE [Suspect]
     Indication: PAIN
     Dosage: 10 MG, Q6H
  5. KETOROLAC [Concomitant]
  6. HYDROMORPHONE HCL [Suspect]
     Dosage: 6 MG, Q3H

REACTIONS (1)
  - HYPERAESTHESIA [None]
